FAERS Safety Report 4708761-9 (Version None)
Quarter: 2005Q3

REPORT INFORMATION
  Report Type: 
  Country: None (occurrence: None)
  Receive Date: 20050705
  Receipt Date: 20050623
  Transmission Date: 20060218
  Serious: Yes (Hospitalization)
  Sender: FDA-Public Use
  Company Number: 033-1343-M0100051

PATIENT
  Sex: Male
  Weight: 3.48 kg

DRUGS (11)
  1. VIRACEPT [Suspect]
     Indication: HIV TEST POSITIVE
     Dosage: 2500 MG (1250 MG, BID), ORAL
     Route: 048
     Dates: start: 20000327
  2. COMBIVIR [Suspect]
     Indication: HIV TEST POSITIVE
     Dosage: (BID), PLACENTAL
     Dates: start: 20000327
  3. RETROVIR [Suspect]
     Indication: HIV TEST POSITIVE
     Dosage: 200 MG/ 20 ML INTRAPARTUM INFUSION.(1 DOSE), PLACENTAL
     Route: 048
     Dates: start: 20000330, end: 20000330
  4. RETROVIR [Suspect]
     Indication: HIV TEST POSITIVE
     Dosage: 200 MG/ 20 ML INTRAPARTUM INFUSION.(1 DOSE), PLACENTAL
     Route: 048
     Dates: start: 20000930, end: 20000930
  5. RETROVIR [Suspect]
     Indication: HIV TEST POSITIVE
     Dosage: 200 MG/ 20 ML INTRAPARTUM INFUSION.(1 DOSE), PLACENTAL
     Route: 048
     Dates: start: 20000901, end: 20001101
  6. RETROVIR [Suspect]
     Indication: HIV TEST POSITIVE
  7. BACTRIM [Concomitant]
  8. COLPOSEPTINE (CHLOROQUINALDOL, PROMESTRIENE) [Concomitant]
  9. SPASFON (PHLOROGLUCINOL, TRIMETHYLPHLOROGLUCINOL) [Concomitant]
  10. GYNO-PEVARYL (ECONAZOLE NITRATE) [Concomitant]
  11. FERROUS SULFATE TAB [Concomitant]

REACTIONS (14)
  - ABDOMINAL DISTENSION [None]
  - ALANINE AMINOTRANSFERASE INCREASED [None]
  - ANAEMIA [None]
  - BLOOD CREATINE PHOSPHOKINASE INCREASED [None]
  - BLOOD KETONE BODY INCREASED [None]
  - DRUG EXPOSURE DURING PREGNANCY [None]
  - HYPERTENSION [None]
  - HYPERTRIGLYCERIDAEMIA [None]
  - LABORATORY TEST ABNORMAL [None]
  - LACTATE PYRUVATE RATIO INCREASED [None]
  - MACROCYTOSIS [None]
  - NEONATAL DISORDER [None]
  - NEUTROPENIA NEONATAL [None]
  - PREGNANCY [None]
